FAERS Safety Report 11825913 (Version 1)
Quarter: 2015Q4

REPORT INFORMATION
  Report Type: Spontaneous
  Country: FR (occurrence: FR)
  Receive Date: 20151211
  Receipt Date: 20151211
  Transmission Date: 20160305
  Serious: Yes (Hospitalization)
  Sender: FDA-Public Use
  Company Number: FR-ACCORD-036234

PATIENT
  Age: 78 Year
  Sex: Male

DRUGS (5)
  1. CISPLATINE ACCORD [Suspect]
     Active Substance: CISPLATIN
     Indication: OROPHARYNGEAL CANCER
     Dosage: IN A SINGLE INTAKE
     Route: 042
     Dates: start: 20150921
  2. ERBITUX [Suspect]
     Active Substance: CETUXIMAB
     Indication: OROPHARYNGEAL CANCER
     Route: 042
     Dates: start: 20150921
  3. ONDANSETRON [Concomitant]
     Active Substance: ONDANSETRON
  4. PRIMPERAN [Concomitant]
     Active Substance: METOCLOPRAMIDE HYDROCHLORIDE
  5. FLUOROURACIL PFIZER [Suspect]
     Active Substance: FLUOROURACIL
     Indication: OROPHARYNGEAL CANCER
     Dosage: IN A SINGLE INTAKE
     Route: 042
     Dates: start: 20150921

REACTIONS (3)
  - Anaemia [Recovering/Resolving]
  - Acute kidney injury [Recovered/Resolved]
  - Pancytopenia [Recovering/Resolving]

NARRATIVE: CASE EVENT DATE: 20150928
